FAERS Safety Report 5629625-2 (Version None)
Quarter: 2008Q1

REPORT INFORMATION
  Report Type: 
  Country: None (occurrence: None)
  Receive Date: 20080218
  Receipt Date: 20080211
  Transmission Date: 20080703
  Serious: Yes (Hospitalization)
  Sender: FDA-Public Use
  Company Number: US-SP-2008-00465

PATIENT

DRUGS (1)
  1. THERACYS [Suspect]
     Route: 043

REACTIONS (5)
  - ARTHRALGIA [None]
  - CHILLS [None]
  - DYSURIA [None]
  - HAEMATURIA [None]
  - PYREXIA [None]
